FAERS Safety Report 5040289-1 (Version None)
Quarter: 2006Q2

REPORT INFORMATION
  Report Type: 
  Country: None (occurrence: None)
  Receive Date: 20060630
  Receipt Date: 20060301
  Transmission Date: 20061013
  Serious: No
  Sender: FDA-Public Use
  Company Number: US-BRISTOL-MYERS SQUIBB COMPANY-13299755

PATIENT
  Sex: Female

DRUGS (4)
  1. ORENCIA [Suspect]
  2. DAYPRO [Concomitant]
  3. ABREVA [Concomitant]
  4. LEVOXYL [Concomitant]

REACTIONS (1)
  - BLEEDING TIME PROLONGED [None]
